FAERS Safety Report 25885882 (Version 2)
Quarter: 2025Q4

REPORT INFORMATION
  Report Type: Report from Study
  Country: CA (occurrence: CA)
  Receive Date: 20251006
  Receipt Date: 20251104
  Transmission Date: 20260117
  Serious: Yes (Death, Other)
  Sender: MYLAN
  Company Number: CA-MYLANLABS-2025M1083643

PATIENT
  Age: 61 Year
  Sex: Male
  Weight: 62.8 kg

DRUGS (1)
  1. CLOZAPINE [Suspect]
     Active Substance: CLOZAPINE
     Indication: Product used for unknown indication
     Dosage: UNK

REACTIONS (3)
  - Parkinson^s disease [Fatal]
  - Cognitive disorder [Fatal]
  - Terminal state [Unknown]

NARRATIVE: CASE EVENT DATE: 20250929
